FAERS Safety Report 6210855-6 (Version None)
Quarter: 2009Q2

REPORT INFORMATION
  Report Type: 
  Country: None (occurrence: None)
  Receive Date: 20090601
  Receipt Date: 20090514
  Transmission Date: 20091009
  Serious: Yes (Hospitalization)
  Sender: FDA-Public Use
  Company Number: IN-BAXTER-2009BH009225

PATIENT
  Age: 52 Year
  Sex: Male

DRUGS (1)
  1. DIANEAL [Suspect]
     Indication: PERITONEAL DIALYSIS
     Route: 033
     Dates: start: 20090426, end: 20090523

REACTIONS (2)
  - FUNGAL PERITONITIS [None]
  - PERITONEAL DIALYSIS COMPLICATION [None]
